FAERS Safety Report 18242652 (Version 1)
Quarter: 2020Q3

REPORT INFORMATION
  Report Type: Spontaneous
  Country: US (occurrence: US)
  Receive Date: 20200908
  Receipt Date: 20200908
  Transmission Date: 20201103
  Serious: Yes (Other)
  Sender: FDA-Public Use
  Company Number: US-PERRIGO-20US012335

PATIENT
  Age: 63 Year
  Sex: Female
  Weight: 56.69 kg

DRUGS (5)
  1. DUAVEE                             /08396601/ [Concomitant]
     Indication: PRODUCT USED FOR UNKNOWN INDICATION
     Dosage: UNK
     Route: 065
     Dates: start: 2018, end: 202006
  2. PROMETRIUM [Concomitant]
     Active Substance: PROGESTERONE
     Dosage: UNK, QD
     Route: 065
     Dates: start: 2016, end: 2018
  3. PROMETRIUM [Concomitant]
     Active Substance: PROGESTERONE
     Indication: PROGESTERONE
     Dosage: UNK, EVERY OTHER MONTH
     Route: 065
     Dates: start: 2013, end: 2016
  4. EVAMIST [Suspect]
     Active Substance: ESTRADIOL
     Dosage: 1.53 TO 3.06 MG, QD
     Route: 061
     Dates: start: 2016, end: 2018
  5. EVAMIST [Suspect]
     Active Substance: ESTRADIOL
     Indication: HOT FLUSH
     Dosage: 3.06 MG, QD
     Route: 061
     Dates: start: 2012, end: 2016

REACTIONS (1)
  - Invasive ductal breast carcinoma [Not Recovered/Not Resolved]

NARRATIVE: CASE EVENT DATE: 20200629
